FAERS Safety Report 5428588-2 (Version None)
Quarter: 2007Q3

REPORT INFORMATION
  Report Type: 
  Country: None (occurrence: None)
  Receive Date: 20070824
  Receipt Date: 20070820
  Transmission Date: 20080115
  Serious: Yes (Death)
  Sender: FDA-Public Use
  Company Number: OSCN-PR-0708S-0319

PATIENT
  Age: 58 Year
  Sex: Male

DRUGS (2)
  1. OMNISCAN [Suspect]
     Indication: ABDOMINAL PAIN
     Dosage: 20 ML, SINGLE DOSE, I.V.
     Route: 042
     Dates: start: 20070820, end: 20070820
  2. OMNISCAN [Suspect]
     Indication: LIVER FUNCTION TEST ABNORMAL
     Dosage: 20 ML, SINGLE DOSE, I.V.
     Route: 042
     Dates: start: 20070820, end: 20070820

REACTIONS (5)
  - COMMUNICATION DISORDER [None]
  - DYSKINESIA [None]
  - FOAMING AT MOUTH [None]
  - GAZE PALSY [None]
  - RESPIRATORY ARREST [None]
